FAERS Safety Report 12550909 (Version 1)
Quarter: 2016Q3

REPORT INFORMATION
  Report Type: Spontaneous
  Country: GB (occurrence: GB)
  Receive Date: 20160712
  Receipt Date: 20160712
  Transmission Date: 20161109
  Serious: Yes (Hospitalization, Other)
  Sender: FDA-Public Use
  Company Number: PHFR2016GB005404

PATIENT
  Age: 56 Year
  Sex: Male

DRUGS (1)
  1. COSENTYX [Suspect]
     Active Substance: SECUKINUMAB
     Indication: PSORIASIS
     Dosage: 300 MG, QMO
     Route: 058
     Dates: start: 20150205

REACTIONS (6)
  - Dyspnoea [Unknown]
  - Peripheral swelling [Unknown]
  - Cardiomegaly [Unknown]
  - Exercise tolerance decreased [Unknown]
  - Cough [Unknown]
  - Snoring [Unknown]

NARRATIVE: CASE EVENT DATE: 20160201
